FAERS Safety Report 23218853 (Version 1)
Quarter: 2023Q4

REPORT INFORMATION
  Report Type: Spontaneous
  Country: FR (occurrence: FR)
  Receive Date: 20231122
  Receipt Date: 20231122
  Transmission Date: 20240109
  Serious: Yes (Other)
  Sender: FDA-Public Use
  Company Number: None

PATIENT
  Age: 67 Year
  Sex: Female

DRUGS (11)
  1. NEORAL [Suspect]
     Active Substance: CYCLOSPORINE
     Indication: Renal transplant
     Dosage: 150 MG, Q12H
     Route: 048
     Dates: start: 20201209, end: 20210108
  2. NEORAL [Suspect]
     Active Substance: CYCLOSPORINE
     Dosage: 125 MG, Q12H
     Route: 048
     Dates: start: 20210108, end: 20210210
  3. NEORAL [Suspect]
     Active Substance: CYCLOSPORINE
     Dosage: 110 MG, Q12H
     Route: 048
     Dates: start: 20210210
  4. MYCOPHENOLATE MOFETIL [Suspect]
     Active Substance: MYCOPHENOLATE MOFETIL
     Indication: Renal transplant
     Dosage: 1 G, Q12H (COMPRESSED)
     Route: 048
     Dates: start: 20200716, end: 20210210
  5. MYCOPHENOLATE MOFETIL [Suspect]
     Active Substance: MYCOPHENOLATE MOFETIL
     Dosage: 750 MG, Q12H
     Route: 048
     Dates: start: 20210210, end: 202112
  6. MYCOPHENOLATE MOFETIL [Suspect]
     Active Substance: MYCOPHENOLATE MOFETIL
     Dosage: 500 MG, Q12H
     Route: 048
     Dates: start: 202112
  7. ELIQUIS [Concomitant]
     Active Substance: APIXABAN
     Indication: Thrombosis prophylaxis
     Dosage: 5 G, Q12H (COMPRIM? PELLICUL?)
     Route: 048
  8. ELIQUIS [Concomitant]
     Active Substance: APIXABAN
     Dosage: 2.5 G, Q12H
     Route: 048
     Dates: start: 20210329
  9. PREDNISONE [Concomitant]
     Active Substance: PREDNISONE
     Indication: Renal transplant
     Dosage: 5 G, QD (COMPRIM?)
     Route: 048
     Dates: start: 20200716
  10. ARANESP [Concomitant]
     Active Substance: DARBEPOETIN ALFA
     Indication: Anaemia
     Dosage: 40 UG
     Route: 058
     Dates: start: 20200716, end: 20210210
  11. PENTACARINAT [Concomitant]
     Active Substance: PENTAMIDINE ISETHIONATE
     Indication: Antifungal prophylaxis
     Dosage: 1 DOSAGE FORM, TIW
     Dates: start: 20200716, end: 20210120

REACTIONS (1)
  - Polyomavirus viraemia [Recovered/Resolved]

NARRATIVE: CASE EVENT DATE: 20210120
